FAERS Safety Report 21466649 (Version 1)
Quarter: 2022Q4

REPORT INFORMATION
  Report Type: Spontaneous
  Country: US (occurrence: US)
  Receive Date: 20221017
  Receipt Date: 20221017
  Transmission Date: 20230113
  Serious: No
  Sender: FDA-Public Use
  Company Number: US-ANTARES PHARMA, INC.-2022-SPO-TU-0001

PATIENT

DRUGS (1)
  1. TLANDO [Suspect]
     Active Substance: TESTOSTERONE UNDECANOATE
     Indication: Product used for unknown indication
     Dosage: 112.5 MILLIGRAM, QD
     Route: 048

REACTIONS (1)
  - Dysgeusia [Recovered/Resolved]
